FAERS Safety Report 8801471 (Version 3)
Quarter: 2015Q2

REPORT INFORMATION
  Report Type: Report from Study
  Country: US (occurrence: US)
  Receive Date: 20120921
  Receipt Date: 20150626
  Transmission Date: 20150821
  Serious: Yes (Death)
  Sender: FDA-Public Use
  Company Number: US-ROCHE-1126291

PATIENT
  Age: 49 Year
  Sex: Female
  Weight: 54 kg

DRUGS (15)
  1. MAGNESIUM SULPHATE [Concomitant]
     Active Substance: MAGNESIUM SULFATE
     Route: 065
  2. MS CONTIN [Concomitant]
     Active Substance: MORPHINE SULFATE
     Indication: PAIN
     Route: 065
  3. MANNITOL. [Concomitant]
     Active Substance: MANNITOL
     Route: 065
  4. PLATINOL [Concomitant]
     Active Substance: CISPLATIN
     Route: 042
  5. GEMZAR [Concomitant]
     Active Substance: GEMCITABINE HYDROCHLORIDE
     Route: 065
  6. ROXANOL [Concomitant]
     Active Substance: MORPHINE SULFATE
  7. MIDAZOLAM [Concomitant]
     Active Substance: MIDAZOLAM\MIDAZOLAM HYDROCHLORIDE
     Route: 065
  8. NEXIUM [Concomitant]
     Active Substance: ESOMEPRAZOLE MAGNESIUM
  9. GEMZAR [Concomitant]
     Active Substance: GEMCITABINE HYDROCHLORIDE
     Route: 042
  10. DECADRON [Concomitant]
     Active Substance: DEXAMETHASONE
     Route: 042
  11. AVASTIN [Suspect]
     Active Substance: BEVACIZUMAB
     Indication: PANCREATIC CARCINOMA
     Route: 042
     Dates: start: 20060706, end: 20061107
  12. ALOXI [Concomitant]
     Active Substance: PALONOSETRON HYDROCHLORIDE
     Route: 042
  13. PLATINOL [Concomitant]
     Active Substance: CISPLATIN
     Route: 042
  14. PROCHLORPERAZINE. [Concomitant]
     Active Substance: PROCHLORPERAZINE
     Indication: NAUSEA
  15. ATIVAN [Concomitant]
     Active Substance: LORAZEPAM
     Route: 042

REACTIONS (16)
  - Off label use [Unknown]
  - Disease progression [Fatal]
  - Paraesthesia [Unknown]
  - Fatigue [Unknown]
  - Ill-defined disorder [Unknown]
  - Pain [Unknown]
  - Weight decreased [Unknown]
  - Back pain [Unknown]
  - Anxiety [Unknown]
  - Thrombocytopenia [Unknown]
  - Hypoaesthesia [Unknown]
  - Abdominal pain [Unknown]
  - Nausea [Unknown]
  - Blood magnesium decreased [Unknown]
  - Restlessness [Unknown]
  - Hypopnoea [Unknown]

NARRATIVE: CASE EVENT DATE: 20070218
